FAERS Safety Report 5358404-9 (Version None)
Quarter: 2007Q2

REPORT INFORMATION
  Report Type: 
  Country: None (occurrence: None)
  Receive Date: 20070530
  Receipt Date: 20061004
  Transmission Date: 20071010
  Serious: Yes (Hospitalization, Other)
  Sender: FDA-Public Use
  Company Number: US200601000850

PATIENT
  Age: 37 Year
  Sex: Male
  Weight: 115.2 kg

DRUGS (4)
  1. ZYPREXA [Suspect]
     Indication: ANXIETY
     Dosage: 10 MG, DAILY (1/D), ORAL
     Route: 048
     Dates: start: 19971105, end: 19990101
  2. PROZAC [Concomitant]
  3. ATIVAN [Concomitant]
  4. NEURONTIN [Concomitant]

REACTIONS (4)
  - BLOOD GLUCOSE INCREASED [None]
  - CARDIAC DISORDER [None]
  - CHEST PAIN [None]
  - DIABETES MELLITUS NON-INSULIN-DEPENDENT [None]
